FAERS Safety Report 24302675 (Version 2)
Quarter: 2025Q3

REPORT INFORMATION
  Report Type: Report from Study
  Country: CA (occurrence: CA)
  Receive Date: 20240910
  Receipt Date: 20250917
  Transmission Date: 20251020
  Serious: Yes (Other)
  Sender: SANDOZ
  Company Number: CA-SANDOZ-SDZ2024CA078184

PATIENT
  Sex: Male
  Weight: 74 kg

DRUGS (1)
  1. HYRIMOZ [Suspect]
     Active Substance: ADALIMUMAB-ADAZ
     Indication: Crohn^s disease
     Dosage: 40 MG EVERY 2 WEEKS SC;EVERY TWO WEEKS, LAST DOSE ON 30-AUG-2024
     Route: 058
     Dates: start: 20211112

REACTIONS (1)
  - Crohn^s disease [Unknown]
